FAERS Safety Report 22902469 (Version 4)
Quarter: 2024Q4

REPORT INFORMATION
  Report Type: Spontaneous
  Country: US (occurrence: US)
  Receive Date: 20230904
  Receipt Date: 20241202
  Transmission Date: 20250114
  Serious: No
  Sender: SANOFI AVENTIS
  Company Number: US-SANOFI-01743883

PATIENT
  Age: 32 Year
  Sex: Female

DRUGS (5)
  1. FABRAZYME [Suspect]
     Active Substance: AGALSIDASE BETA
     Indication: Fabry^s disease
     Dosage: 1295MG,QOW
     Route: 065
     Dates: start: 20230719
  2. FABRAZYME [Suspect]
     Active Substance: AGALSIDASE BETA
     Dosage: 180 MG
     Route: 065
     Dates: start: 20230816
  3. FABRAZYME [Suspect]
     Active Substance: AGALSIDASE BETA
     Dosage: 175 MG, QOW
     Route: 065
  4. FABRAZYME [Suspect]
     Active Substance: AGALSIDASE BETA
     Dosage: 160 MG, QOW
     Route: 065
  5. FABRAZYME [Suspect]
     Active Substance: AGALSIDASE BETA
     Dosage: 150 MG
     Route: 065

REACTIONS (3)
  - Overweight [Recovering/Resolving]
  - Off label use [Unknown]
  - Incorrect dose administered [Unknown]

NARRATIVE: CASE EVENT DATE: 20230101
